FAERS Safety Report 4699483-1 (Version None)
Quarter: 2005Q2

REPORT INFORMATION
  Report Type: 
  Country: None (occurrence: None)
  Receive Date: 20050624
  Receipt Date: 20050503
  Transmission Date: 20051028
  Serious: Yes (Life-Threatening, Hospitalization, Disabling, Other)
  Sender: FDA-Public Use
  Company Number: US-MERCK-0505USA00500

PATIENT
  Age: 8 Year
  Sex: Male
  Weight: 19 kg

DRUGS (16)
  1. CANCIDAS [Suspect]
     Indication: FUNGAEMIA
     Route: 042
     Dates: start: 20050418, end: 20050503
  2. CANCIDAS [Suspect]
     Route: 042
     Dates: start: 20050402, end: 20050408
  3. CHLORHEXIDINE GLUCONATE [Concomitant]
     Indication: MUCOSAL INFLAMMATION
     Route: 048
     Dates: start: 20050505
  4. CHLORHEXIDINE GLUCONATE [Concomitant]
     Indication: PROPHYLAXIS
     Route: 048
     Dates: start: 20050505
  5. HYDROCORTISONE [Concomitant]
     Route: 042
     Dates: start: 20050418
  6. LORAZEPAM [Concomitant]
     Indication: SEDATION
     Route: 042
     Dates: start: 20050418, end: 20050523
  7. METOCLOPRAMIDE [Concomitant]
     Route: 042
     Dates: start: 20050311, end: 20050517
  8. BACTRIM [Concomitant]
     Indication: INFECTION PROPHYLAXIS
     Route: 048
     Dates: start: 20050417
  9. VORICONAZOLE [Concomitant]
     Indication: CENTRAL NERVOUS SYSTEM INFECTION
     Route: 042
     Dates: start: 20050418, end: 20050423
  10. FENTANYL [Concomitant]
     Indication: PAIN
     Route: 061
     Dates: start: 20050418, end: 20050523
  11. [COMPOSITION UNSPECIFIED] [Concomitant]
     Route: 042
     Dates: start: 20050415, end: 20050416
  12. [COMPOSITION UNSPECIFIED] [Concomitant]
     Indication: FEBRILE NEUTROPENIA
     Route: 042
     Dates: start: 20050429, end: 20050506
  13. LANSOPRAZOLE [Concomitant]
     Indication: GASTROINTESTINAL DISORDER
     Route: 048
     Dates: start: 20050419, end: 20050519
  14. LANSOPRAZOLE [Concomitant]
     Indication: PROPHYLAXIS
     Route: 048
     Dates: start: 20050419, end: 20050519
  15. CEFEPIME [Concomitant]
     Indication: FEBRILE NEUTROPENIA
     Route: 042
     Dates: start: 20050406, end: 20050523
  16. FUROSEMIDE [Concomitant]
     Route: 042
     Dates: start: 20050502, end: 20050516

REACTIONS (1)
  - HYPERCALCAEMIA [None]
